FAERS Safety Report 9649215 (Version 3)
Quarter: 2014Q1

REPORT INFORMATION
  Report Type: Spontaneous
  Country: US (occurrence: US)
  Receive Date: 20131028
  Receipt Date: 20140108
  Transmission Date: 20141002
  Serious: Yes (Other)
  Sender: FDA-Public Use
  Company Number: US-PFIZER INC-2013307634

PATIENT
  Age: 69 Year
  Sex: Male
  Weight: 81.63 kg

DRUGS (23)
  1. SUTENT [Suspect]
     Indication: METASTATIC RENAL CELL CARCINOMA
     Dosage: 50 MG, ONCE DAILY, CYCLIC: 28 DAYS ON TREATMENT FOLLOWED BY 14 DAYS OFF TREATMENT
     Dates: start: 201205, end: 201304
  2. SUTENT [Suspect]
     Dosage: 50 MG ON A SCHEDULE OF 14 DAYS AND 37.5MG ON A SCHEDULE OF 14 DAYS FOLLOWED BY 14 DAYS OFF, CYCLIC
     Dates: start: 201306
  3. SUTENT [Suspect]
     Dosage: 37.5 MG, CYCLIC (14 DAYS, ON TREATMENT FOLLOWED BY 14 DAYS OFF TREATMENT
     Dates: start: 2013, end: 2013
  4. SUTENT [Suspect]
     Dosage: 50 MG, CYCLIC (4 WEEKS ON TREATMENT FOLLOWED BY 2 WEEKS OFF TREATMENT)
     Dates: start: 2013
  5. LOSARTAN POTASSIUM [Concomitant]
     Dosage: 100 MG, 2X/DAY (2 TABLETS)
     Route: 048
  6. LOSARTAN POTASSIUM [Concomitant]
     Dosage: 200 MG, 2X/DAY (100MG 2 TABLETS TWICE A DAY)
  7. CLONIDINE HYDROCHLORIDE [Concomitant]
     Dosage: 0.1 MG, 2X/DAY (AS NEEDED)
     Route: 048
  8. AMLODIPINE BESYLATE [Concomitant]
     Dosage: 5MG, (1 TABLET, ONCE TO TWICE DAILY AS NEEDED)
     Route: 048
  9. AMLODIPINE BESYLATE [Concomitant]
     Dosage: 5 MG, AS NEEDED (1 TABLET ONCE TO TWICE DAILY AS NEEDED)
  10. BYSTOLIC [Concomitant]
     Indication: PULSE ABNORMAL
     Dosage: 5 MG, 1 TABLET ONCE DAILY FOR PULSE } 48
  11. UROCIT-K [Concomitant]
     Dosage: 1080 MG, ALTERNATE DAY (10 MEQ, 1 TABLET WITH MEALS)
  12. SYNTHROID [Concomitant]
     Dosage: 125 UG, 1X/DAY (1 TABLET ONCE DAILY WHILE ON SUTENT)
  13. SYNTHROID [Concomitant]
     Dosage: (75-100 MCG QD)
  14. CATAPRES-TTS [Concomitant]
     Dosage: 0.2 MG/24 HR, WEEKLY (1 PATCH TO SKIN ONCE A WEEK)
  15. VITAMIN D3 [Concomitant]
     Dosage: UNK
  16. VITAMIN C [Concomitant]
     Dosage: 500 MG, 1X/DAY (1 TABLET)
  17. GAS-X [Concomitant]
     Dosage: 1 TABLET 2-4 TIMES DAILY AS NEEDED
  18. NASCOBAL [Concomitant]
     Dosage: 500 MCG/0.1ML SOLUTION, 1 SPRAY INTRA NASALLY ONCE A WEEK ON SATURDAY
     Route: 045
  19. ZOFRAN [Concomitant]
     Dosage: 8 MG, 2X/DAY (AS NEEDED)
  20. CLONIDINE [Concomitant]
     Indication: BLOOD PRESSURE INCREASED
     Dosage: 0.1 MG, 2X/DAY (AS NEEDED)
  21. OMEPRAZOLE [Concomitant]
     Dosage: 40 MG, 2X/DAY (AS NEEDED WHILE ON SUTENT)
  22. VIAGRA [Concomitant]
     Dosage: 25 MG, AS NEEDED
  23. VITAMIN D [Concomitant]
     Dosage: 2000 DF, 1X/DAY ( 1 TABLET)

REACTIONS (9)
  - Blood pressure increased [Recovered/Resolved]
  - Blood pressure increased [Unknown]
  - Hypothyroidism [Unknown]
  - Hyperparathyroidism [Unknown]
  - Hypocalcaemia [Unknown]
  - White blood cell count decreased [Unknown]
  - Neutrophil count decreased [Unknown]
  - Anaemia [Unknown]
  - Oedema peripheral [Unknown]
